FAERS Safety Report 6861231-4 (Version None)
Quarter: 2010Q3

REPORT INFORMATION
  Report Type: 
  Country: None (occurrence: None)
  Receive Date: 20100720
  Receipt Date: 20100702
  Transmission Date: 20110219
  Serious: Yes (Hospitalization, Other)
  Sender: FDA-Public Use
  Company Number: US-SANOFI-AVENTIS-2010SA037073

PATIENT
  Age: 43 Year
  Sex: Female

DRUGS (4)
  1. OPTICLICK [Suspect]
  2. APIDRA [Suspect]
     Route: 058
  3. LANTUS [Suspect]
     Route: 058
  4. SOLOSTAR [Suspect]

REACTIONS (2)
  - DEVICE MALFUNCTION [None]
  - HYPERGLYCAEMIA [None]
